FAERS Safety Report 15638953 (Version 1)
Quarter: 2018Q4

REPORT INFORMATION
  Report Type: Spontaneous
  Country: US (occurrence: US)
  Receive Date: 20181120
  Receipt Date: 20181120
  Transmission Date: 20190205
  Serious: No
  Sender: FDA-Public Use
  Company Number: US-PERRIGO-18US008407

PATIENT
  Age: 80 Year
  Sex: Male
  Weight: 76.19 kg

DRUGS (2)
  1. POLYETHYLENE GLYCOL 3350. [Suspect]
     Active Substance: POLYETHYLENE GLYCOL 3350
     Dosage: UNKNOWN, QD OR QOD AS NEEDED
     Route: 048
     Dates: start: 2018
  2. POLYETHYLENE GLYCOL 3350. [Suspect]
     Active Substance: POLYETHYLENE GLYCOL 3350
     Indication: CONSTIPATION
     Dosage: 17 G, QD OR QOD AS NEEDED
     Route: 048
     Dates: start: 20171201, end: 2018

REACTIONS (2)
  - Incorrect product administration duration [Unknown]
  - Incorrect dose administered [Unknown]

NARRATIVE: CASE EVENT DATE: 20171208
